FAERS Safety Report 14324306 (Version 1)
Quarter: 2017Q4

REPORT INFORMATION
  Report Type: Spontaneous
  Country: US (occurrence: US)
  Receive Date: 20171226
  Receipt Date: 20171226
  Transmission Date: 20180321
  Serious: Yes (Hospitalization, Other)
  Sender: FDA-Public Use
  Company Number: US-AUROBINDO-AUR-APL-2017-45609

PATIENT
  Age: 72 Year
  Sex: Female

DRUGS (2)
  1. PREDNISONE. [Suspect]
     Active Substance: PREDNISONE
     Dosage: TAPER
     Route: 065
  2. PREDNISONE. [Suspect]
     Active Substance: PREDNISONE
     Indication: TUBULOINTERSTITIAL NEPHRITIS
     Dosage: 70 MG, DAILY
     Route: 065

REACTIONS (7)
  - Pyrexia [Unknown]
  - Crepitations [Unknown]
  - Dyspnoea [Unknown]
  - Hypoxia [Recovering/Resolving]
  - Pneumocystis jirovecii pneumonia [Fatal]
  - Leukocytosis [Recovered/Resolved]
  - Tachycardia [Unknown]
